FAERS Safety Report 15714717 (Version 3)
Quarter: 2018Q4

REPORT INFORMATION
  Report Type: Spontaneous
  Country: CA (occurrence: CA)
  Receive Date: 20181212
  Receipt Date: 20181221
  Transmission Date: 20190205
  Serious: Yes (Other)
  Sender: FDA-Public Use
  Company Number: CA-CELLTRION INC.-2017CA003598

PATIENT

DRUGS (4)
  1. NOVO-LEFLUNOMIDE [Concomitant]
     Dosage: 20 MG, DAILY
     Dates: start: 20160121
  2. INFLECTRA [Suspect]
     Active Substance: INFLIXIMAB-DYYB
     Indication: PSORIATIC ARTHROPATHY
     Dosage: 330 MG, CYCLIC (EVERY 2, 6 WEEKS, THEN EVERY 8 WEEKS FOR 12 MONTHS)
     Route: 042
     Dates: start: 20170204
  3. INFLECTRA [Suspect]
     Active Substance: INFLIXIMAB-DYYB
     Dosage: 330 MG, CYCLIC (EVERY 8 WEEKS)
     Route: 042
     Dates: start: 20180927
  4. INFLECTRA [Suspect]
     Active Substance: INFLIXIMAB-DYYB
     Dosage: 330 MG, CYCLIC (EVERY 8 WEEKS)
     Route: 042
     Dates: start: 20181129

REACTIONS (6)
  - Ear infection [Recovered/Resolved]
  - Allergy to metals [Recovered/Resolved]
  - Eye infection [Recovered/Resolved]
  - Off label use [Unknown]
  - Dacryocanaliculitis [Recovered/Resolved]
  - Cystitis [Recovered/Resolved]

NARRATIVE: CASE EVENT DATE: 20170220
